FAERS Safety Report 9299875 (Version 1)
Quarter: 2012Q4

REPORT INFORMATION
  Report Type: Spontaneous
  Country: SE (occurrence: None)
  Receive Date: 20121113
  Receipt Date: 20121113
  Transmission Date: 20130627
  Serious: Yes (Death)
  Sender: FDA-Public Use
  Company Number: 2012033892

PATIENT
  Age: 16 Year
  Sex: Female

DRUGS (1)
  1. RIASTAP [Suspect]
     Indication: FIBRINOGEN DECREASED
     Dosage: (not otherwise specified)
     Route: 042
     Dates: start: 20120903, end: 20120903

REACTIONS (7)
  - Cardiac arrest [None]
  - Pulmonary embolism [None]
  - Hypotension [None]
  - Intracardiac thrombus [None]
  - Cor pulmonale acute [None]
  - Off label use [None]
  - Pulmonary oedema [None]
